FAERS Safety Report 15853866 (Version 3)
Quarter: 2019Q1

REPORT INFORMATION
  Report Type: Spontaneous
  Country: US (occurrence: US)
  Receive Date: 20190122
  Receipt Date: 20190128
  Transmission Date: 20190417
  Serious: No
  Sender: FDA-Public Use
  Company Number: US-PFIZER INC-2019028019

PATIENT
  Age: 78 Year
  Sex: Female
  Weight: 98.64 kg

DRUGS (5)
  1. TROVAN (ALATROFLOXACIN MESILATE) [Suspect]
     Active Substance: ALATROFLOXACIN MESYLATE
     Dosage: UNK
  2. REMEDOL [Suspect]
     Active Substance: ACETAMINOPHEN
     Dosage: UNK
  3. CODEINE SULFATE. [Suspect]
     Active Substance: CODEINE SULFATE
     Dosage: UNK
  4. TRAMADOL. [Suspect]
     Active Substance: TRAMADOL
     Dosage: UNK
  5. GABAPENTIN. [Suspect]
     Active Substance: GABAPENTIN
     Dosage: UNK

REACTIONS (2)
  - Drug hypersensitivity [Unknown]
  - Drug intolerance [Unknown]
